FAERS Safety Report 13747121 (Version 2)
Quarter: 2017Q3

REPORT INFORMATION
  Report Type: Report from Study
  Country: HR (occurrence: HR)
  Receive Date: 20170712
  Receipt Date: 20170727
  Transmission Date: 20171127
  Serious: Yes (Hospitalization)
  Sender: FDA-Public Use
  Company Number: HR-BAYER-2017-128390

PATIENT
  Age: 52 Year
  Sex: Female

DRUGS (2)
  1. BETAFERON [Suspect]
     Active Substance: INTERFERON BETA-1B
     Indication: MULTIPLE SCLEROSIS
     Dosage: UNK
     Dates: start: 2006, end: 201706
  2. BETAFERON [Suspect]
     Active Substance: INTERFERON BETA-1B
     Indication: MULTIPLE SCLEROSIS
     Dosage: UNK

REACTIONS (14)
  - Skin disorder [Recovered/Resolved]
  - Injection site discolouration [None]
  - Nausea [None]
  - Hyperhidrosis [Recovered/Resolved]
  - Erythema [Recovered/Resolved]
  - Erythema [Recovered/Resolved]
  - Injection site scar [None]
  - Anaemia [None]
  - Injection site abscess [Recovered/Resolved]
  - Pain [Recovered/Resolved]
  - Pyrexia [None]
  - Epidermolysis [Recovered/Resolved]
  - Injection site abscess [Recovered/Resolved]
  - Headache [None]

NARRATIVE: CASE EVENT DATE: 20170218
